FAERS Safety Report 10934021 (Version 1)
Quarter: 2015Q1

REPORT INFORMATION
  Report Type: Spontaneous
  Country: GB (occurrence: GB)
  Receive Date: 20150320
  Receipt Date: 20150320
  Transmission Date: 20150721
  Serious: Yes (Hospitalization)
  Sender: FDA-Public Use
  Company Number: GB-TEVA-547866ACC

PATIENT
  Age: 60 Year
  Sex: Male
  Weight: 77.6 kg

DRUGS (10)
  1. SIMVASTATIN. [Concomitant]
     Active Substance: SIMVASTATIN
  2. CO-AMOXICLAV [Suspect]
     Active Substance: AMOXICILLIN\CLAVULANIC ACID
     Indication: APPENDICECTOMY
     Dosage: 1875 MILLIGRAM DAILY;
     Route: 048
     Dates: start: 20150213, end: 20150226
  3. SENNA [Concomitant]
     Active Substance: SENNA LEAF\SENNOSIDES\SENNOSIDES A AND B
  4. BENDROFLUMETHIAZIDE [Concomitant]
     Active Substance: BENDROFLUMETHIAZIDE
  5. OMEPRAZOLE. [Concomitant]
     Active Substance: OMEPRAZOLE
  6. PARACETAMOL [Concomitant]
     Active Substance: ACETAMINOPHEN
  7. RAMIPRIL. [Concomitant]
     Active Substance: RAMIPRIL
  8. NYSTATIN. [Concomitant]
     Active Substance: NYSTATIN
  9. CODEINE [Concomitant]
     Active Substance: CODEINE
  10. NEBIVOLOL [Concomitant]
     Active Substance: NEBIVOLOL

REACTIONS (4)
  - Chromaturia [Not Recovered/Not Resolved]
  - Abdominal pain [Not Recovered/Not Resolved]
  - Faeces discoloured [Not Recovered/Not Resolved]
  - Jaundice [Not Recovered/Not Resolved]

NARRATIVE: CASE EVENT DATE: 20150302
